FAERS Safety Report 8839911 (Version 1)
Quarter: 2012Q4

REPORT INFORMATION
  Report Type: Spontaneous
  Country: IE (occurrence: None)
  Receive Date: 20121011
  Receipt Date: 20121011
  Transmission Date: 20130627
  Serious: Yes (Other)
  Sender: FDA-Public Use
  Company Number: 2012000213

PATIENT
  Age: 48 Year
  Sex: Male
  Weight: 90 kg

DRUGS (3)
  1. ACEON (PERINDOPRIL ERBUMINE) TABLET [Suspect]
     Indication: HYPERTENSION ARTERIAL
     Route: 048
     Dates: start: 20120726, end: 20120817
  2. CAPRIN (ACETYLSALICYLIC ACID) [Concomitant]
  3. CRESTOR (ROSUVASTATIN CALCIUM) [Concomitant]

REACTIONS (3)
  - Depressed mood [None]
  - Irritability [None]
  - Depressed mood [None]
